FAERS Safety Report 15075542 (Version 1)
Quarter: 2018Q2

REPORT INFORMATION
  Report Type: Spontaneous
  Country: US (occurrence: US)
  Receive Date: 20180627
  Receipt Date: 20180627
  Transmission Date: 20180711
  Serious: Yes (Other)
  Sender: FDA-Public Use
  Company Number: US-SAOL THERAPEUTICS-2018SAO00173

PATIENT
  Age: 19 Year
  Sex: Male

DRUGS (3)
  1. LIORESAL [Suspect]
     Active Substance: BACLOFEN
     Dosage: 1900 ?G, \DAY
     Route: 037
  2. LIORESAL [Suspect]
     Active Substance: BACLOFEN
     Indication: DYSTONIA
     Dosage: 1972 ?G, \DAY
     Route: 037
  3. LIORESAL [Suspect]
     Active Substance: BACLOFEN
     Indication: MUSCLE SPASTICITY
     Dosage: 1869 ?G, \DAY
     Route: 037

REACTIONS (8)
  - Device failure [Unknown]
  - Therapy non-responder [Unknown]
  - Muscle spasticity [Unknown]
  - Seizure [Unknown]
  - Incoherent [Unknown]
  - Somnolence [Unknown]
  - Lethargy [Unknown]
  - Overdose [Unknown]

NARRATIVE: CASE EVENT DATE: 201511
